FAERS Safety Report 23698078 (Version 1)
Quarter: 2024Q2

REPORT INFORMATION
  Report Type: Spontaneous
  Country: CN (occurrence: CN)
  Receive Date: 20240402
  Receipt Date: 20240402
  Transmission Date: 20240716
  Serious: Yes (Other)
  Sender: FDA-Public Use
  Company Number: CN-Merck Healthcare KGaA-2024017331

PATIENT
  Age: 61 Year
  Sex: Male
  Weight: 69 kg

DRUGS (6)
  1. METFORMIN [Suspect]
     Active Substance: METFORMIN HYDROCHLORIDE
     Indication: Type 2 diabetes mellitus
     Route: 048
     Dates: start: 20240124, end: 20240313
  2. HUMALOG [Suspect]
     Active Substance: INSULIN LISPRO
     Indication: Type 2 diabetes mellitus
     Dosage: 4-12 U,
     Route: 058
     Dates: start: 20240124, end: 20240313
  3. HUMALOG [Suspect]
     Active Substance: INSULIN LISPRO
     Dosage: 6 U, 12 U AND 10 U, WITHIN 5 MINUTES BEFORE BREAKFAST, LUNCH AND DINNER, STARTING BEFORE LUNCH.
     Dates: start: 20240313
  4. LANTUS [Suspect]
     Active Substance: INSULIN GLARGINE
     Indication: Type 2 diabetes mellitus
     Dosage: 12-26 U
     Route: 058
     Dates: start: 20240124, end: 20240313
  5. LANTUS [Suspect]
     Active Substance: INSULIN GLARGINE
     Dosage: 26 U, ABDOMINAL SUBCUTANEOUS INJECTION BEFORE BEDTIME, ONCE PER NIGHT (QN), STARTING BEFORE BEDTIME.
     Dates: start: 20240313
  6. SIMVASTATIN [Concomitant]
     Active Substance: SIMVASTATIN
     Indication: Product used for unknown indication
     Dates: start: 20231228

REACTIONS (3)
  - Hypoglycaemia [Recovered/Resolved]
  - Loss of consciousness [Recovered/Resolved]
  - Blood pressure increased [Recovered/Resolved]

NARRATIVE: CASE EVENT DATE: 20240313
